FAERS Safety Report 14328806 (Version 1)
Quarter: 2017Q4

REPORT INFORMATION
  Report Type: Spontaneous
  Country: US (occurrence: US)
  Receive Date: 20171227
  Receipt Date: 20171227
  Transmission Date: 20180321
  Serious: Yes (Other)
  Sender: FDA-Public Use
  Company Number: US-BAYER-2017-243812

PATIENT
  Age: 62 Year
  Sex: Female
  Weight: 73 kg

DRUGS (4)
  1. ALKA-SELTZER PLUS DAY AND NIGHT MULTI-SYMPTOM COLD AND FLU FORMULA [Suspect]
     Active Substance: ACETAMINOPHEN\DEXTROMETHORPHAN HYDROBROMIDE\DOXYLAMINE SUCCINATE\PHENYLEPHRINE
     Indication: NASOPHARYNGITIS
  2. ALKA-SELTZER PLUS DAY AND NIGHT MULTI-SYMPTOM COLD AND FLU FORMULA [Suspect]
     Active Substance: ACETAMINOPHEN\DEXTROMETHORPHAN HYDROBROMIDE\DOXYLAMINE SUCCINATE\PHENYLEPHRINE
     Indication: ALLERGIC RESPIRATORY SYMPTOM
     Dosage: 2 DF, ONCE
     Route: 048
     Dates: start: 20171208, end: 20171208
  3. ALKA-SELTZER PLUS DAY AND NIGHT MULTI-SYMPTOM COLD AND FLU FORMULA [Suspect]
     Active Substance: ACETAMINOPHEN\DEXTROMETHORPHAN HYDROBROMIDE\DOXYLAMINE SUCCINATE\PHENYLEPHRINE
     Indication: NASOPHARYNGITIS
  4. ALKA-SELTZER PLUS DAY AND NIGHT MULTI-SYMPTOM COLD AND FLU FORMULA [Suspect]
     Active Substance: ACETAMINOPHEN\DEXTROMETHORPHAN HYDROBROMIDE\DOXYLAMINE SUCCINATE\PHENYLEPHRINE
     Indication: HYPERSENSITIVITY
     Dosage: 2 DF, QD
     Route: 048
     Dates: start: 20171208, end: 20171209

REACTIONS (5)
  - Hallucination, visual [Recovered/Resolved]
  - Seizure [Recovered/Resolved]
  - Tremor [Recovered/Resolved]
  - Motor dysfunction [Recovered/Resolved]
  - Nervousness [Recovered/Resolved]

NARRATIVE: CASE EVENT DATE: 20171208
